FAERS Safety Report 7351170-7 (Version None)
Quarter: 2011Q1

REPORT INFORMATION
  Report Type: 
  Country: None (occurrence: None)
  Receive Date: 20110314
  Receipt Date: 20101217
  Transmission Date: 20110831
  Serious: No
  Sender: FDA-Public Use
  Company Number: US-BAYER-2011-010150

PATIENT
  Sex: Female
  Weight: 54 kg

DRUGS (5)
  1. ATENOLOL [Concomitant]
  2. ALEVE (CAPLET) [Suspect]
     Indication: ANALGESIC THERAPY
  3. HYDROCHLOROTHIAZIDE [Concomitant]
  4. DIAZEPAM [Concomitant]
  5. SUDOGEST [Concomitant]

REACTIONS (1)
  - DRUG INEFFECTIVE [None]
